FAERS Safety Report 5739529-2 (Version None)
Quarter: 2008Q2

REPORT INFORMATION
  Report Type: 
  Country: None (occurrence: None)
  Receive Date: 20080515
  Receipt Date: 20080421
  Transmission Date: 20081010
  Serious: No
  Sender: FDA-Public Use
  Company Number: US-BOEHRINGER INGELHEIM GMBH, GERMANY-2008-BP-04501BP

PATIENT
  Age: 91 Year
  Sex: Male

DRUGS (10)
  1. SPIRIVA [Suspect]
     Indication: LUNG DISORDER
     Dates: start: 20080215, end: 20080219
  2. SPIRIVA [Suspect]
     Indication: DYSPNOEA
  3. TOPROL-XL [Concomitant]
     Indication: CARDIAC DISORDER
  4. XANAX [Concomitant]
  5. LASIX [Concomitant]
  6. POTASSIUM CHLORIDE [Concomitant]
  7. SYNTHROID [Concomitant]
     Indication: HYPOTHYROIDISM
  8. COUMADIN [Concomitant]
     Indication: ATRIAL FIBRILLATION
  9. ZOCOR [Concomitant]
  10. ADVAIR DISKUS 100/50 [Concomitant]

REACTIONS (3)
  - PRURITUS [None]
  - RASH [None]
  - URTICARIA [None]
